FAERS Safety Report 6998905-0 (Version None)
Quarter: 2010Q3

REPORT INFORMATION
  Report Type: 
  Country: None (occurrence: None)
  Receive Date: 20100902
  Receipt Date: 20100122
  Transmission Date: 20110219
  Serious: Yes (Disabling, Other)
  Sender: FDA-Public Use
  Company Number: 222510USA

PATIENT
  Sex: Female

DRUGS (1)
  1. METOCLOPRAMIDE [Suspect]
     Indication: GASTRIC DISORDER
     Dosage: 10 MG
     Dates: start: 20050101, end: 20080101

REACTIONS (4)
  - AKATHISIA [None]
  - CONFUSIONAL STATE [None]
  - MEMORY IMPAIRMENT [None]
  - TARDIVE DYSKINESIA [None]
